FAERS Safety Report 5626829-X (Version None)
Quarter: 2008Q1

REPORT INFORMATION
  Report Type: 
  Country: None (occurrence: None)
  Receive Date: 20080212
  Receipt Date: 20080131
  Transmission Date: 20080703
  Serious: Yes (Other)
  Sender: FDA-Public Use
  Company Number: 230002J08DEU

PATIENT
  Age: 28 Year
  Sex: Male

DRUGS (1)
  1. REBIF [Suspect]

REACTIONS (4)
  - HERPES ZOSTER OTICUS [None]
  - HYPOAESTHESIA ORAL [None]
  - INFECTION [None]
  - OTITIS MEDIA CHRONIC [None]
